FAERS Safety Report 9920296 (Version 2)
Quarter: 2014Q1

REPORT INFORMATION
  Report Type: Spontaneous
  Country: US (occurrence: US)
  Receive Date: 20140224
  Receipt Date: 20140227
  Transmission Date: 20141002
  Serious: Yes (Death, Hospitalization)
  Sender: FDA-Public Use
  Company Number: PHEH2014US003489

PATIENT
  Age: 55 Year
  Sex: Female

DRUGS (4)
  1. GILENYA [Suspect]
     Indication: MULTIPLE SCLEROSIS
     Dosage: 0.5 MG, QD
     Route: 048
     Dates: start: 20130909
  2. ESCITALOPRAM [Concomitant]
     Dosage: 20 MG, UNK FOR 90 DAYS
     Route: 048
     Dates: start: 20130103
  3. PROAIR HFA [Concomitant]
     Dosage: 90 UG, UNK FOR 30 DAYS AT A TOTAL OF 9
     Route: 055
     Dates: start: 20130903
  4. LEXAPRO [Concomitant]
     Dosage: 1 DF, QD
     Route: 048

REACTIONS (1)
  - Pancreatitis [Fatal]
